FAERS Safety Report 5677523-0 (Version None)
Quarter: 2008Q1

REPORT INFORMATION
  Report Type: 
  Country: None (occurrence: None)
  Receive Date: 20080324
  Receipt Date: 20080312
  Transmission Date: 20080703
  Serious: Yes (Hospitalization)
  Sender: FDA-Public Use
  Company Number: US-ELI_LILLY_AND_COMPANY-US200803002636

PATIENT
  Sex: Female

DRUGS (1)
  1. FORTEO [Suspect]

REACTIONS (1)
  - ASTHMA [None]
